FAERS Safety Report 16274483 (Version 1)
Quarter: 2020Q3

REPORT INFORMATION
  Report Type: Report from Study
  Country: ES (occurrence: ES)
  Receive Date: 20190504
  Receipt Date: 20190504
  Transmission Date: 20201104
  Serious: Yes (Hospitalization)
  Sender: FDA-Public Use
  Company Number: ES-TEVA-2019-ES-1046003

PATIENT
  Age: 46 Year
  Sex: Male
  Weight: 72 kg

DRUGS (8)
  1. BENDAMUSTINE HYDROCHLORIDE. [Suspect]
     Active Substance: BENDAMUSTINE HYDROCHLORIDE
     Indication: DIFFUSE LARGE B-CELL LYMPHOMA
     Dosage: 90 MG/M2, CYCLIC (EVERY 21 DAYS)
     Route: 042
     Dates: start: 20190123
  2. ACICLOVIR [Concomitant]
     Active Substance: ACYCLOVIR
     Indication: PROPHYLAXIS
     Dosage: 10 MILLIGRAM DAILY; 20 MG, EVERY OTHER DAY (EVERY 2 DAYS)
     Route: 048
  3. OMEPRAZOL                          /00661201/ [Concomitant]
     Active Substance: OMEPRAZOLE
     Indication: PROPHYLAXIS
     Route: 048
     Dates: start: 20190122
  4. RITUXIMAB. [Suspect]
     Active Substance: RITUXIMAB
     Indication: DIFFUSE LARGE B-CELL LYMPHOMA
     Dosage: 375 MG/M2, EVERY 3 WEEKS (EVERY 21 DAYS)
     Route: 042
     Dates: start: 20190122
  5. POLATUZUMAB VEDOTIN. [Suspect]
     Active Substance: POLATUZUMAB VEDOTIN
     Indication: DIFFUSE LARGE B-CELL LYMPHOMA
     Dosage: 1.8 MG/KG, EVERY 3 WEEKS (EVERY 21 DAYS)
     Route: 042
     Dates: start: 20190123
  6. LOSARTAN. [Concomitant]
     Active Substance: LOSARTAN
     Indication: HYPERTENSION
     Route: 048
     Dates: start: 20160328
  7. METOCLOPRAMIDE. [Concomitant]
     Active Substance: METOCLOPRAMIDE
     Indication: VOMITING
     Dosage: 10 MG, THRICE DAILY (EVERY 8 HOURS)
     Route: 048
     Dates: start: 20190122
  8. SULFAMETHOXAZOLE W/TRIMETHOPRIM [Concomitant]
     Active Substance: SULFAMETHOXAZOLE\TRIMETHOPRIM
     Indication: PROPHYLAXIS
     Dosage: 400 MILLIGRAM DAILY; 800 MG, EVERY OTHER DAY (EVERY 2 DAYS)
     Route: 048
     Dates: start: 20171219

REACTIONS (2)
  - Influenza [Recovered/Resolved]
  - Haemophilus bacteraemia [Recovered/Resolved]

NARRATIVE: CASE EVENT DATE: 20190127
